FAERS Safety Report 20343302 (Version 2)
Quarter: 2022Q1

REPORT INFORMATION
  Report Type: Spontaneous
  Country: JP (occurrence: JP)
  Receive Date: 20220117
  Receipt Date: 20220214
  Transmission Date: 20220423
  Serious: Yes (Other)
  Sender: FDA-Public Use
  Company Number: JP-SA-2022SA013093

PATIENT
  Age: 46 Year
  Sex: Female

DRUGS (15)
  1. DUPIXENT [Suspect]
     Active Substance: DUPILUMAB
     Indication: Chronic eosinophilic rhinosinusitis
     Dosage: 300 MG, QOW
     Route: 058
     Dates: start: 20211224
  2. ALLEGRA [FEXOFENADINE HYDROCHLORIDE] [Concomitant]
     Indication: Nasal congestion
     Dosage: DAILY DOSE 60 MG, BID
     Route: 048
     Dates: start: 20211224
  3. ALLEGRA [FEXOFENADINE HYDROCHLORIDE] [Concomitant]
     Indication: Rhinorrhoea
  4. FLUTICASONE FUROATE\VILANTEROL TRIFENATATE [Concomitant]
     Active Substance: FLUTICASONE FUROATE\VILANTEROL TRIFENATATE
     Indication: Asthma
     Dosage: UNK
     Route: 065
  5. CARBOCYSTEINE [Concomitant]
     Active Substance: CARBOCYSTEINE
     Indication: Productive cough
     Dosage: UNK
     Route: 065
  6. CARBOCYSTEINE [Concomitant]
     Active Substance: CARBOCYSTEINE
     Indication: Nasal congestion
  7. CELESTAMINE [Concomitant]
     Active Substance: BETAMETHASONE\DEXCHLORPHENIRAMINE MALEATE
     Indication: Chronic eosinophilic rhinosinusitis
     Dosage: TWICE DAILY IN THE MORNING AND EVENING
     Route: 065
     Dates: start: 20211109, end: 20211113
  8. CELESTAMINE [Concomitant]
     Active Substance: BETAMETHASONE\DEXCHLORPHENIRAMINE MALEATE
     Dosage: UNK, QD
     Route: 065
     Dates: start: 20211114, end: 20211118
  9. PREDONINE [Concomitant]
     Active Substance: PREDNISOLONE
     Indication: Chronic eosinophilic rhinosinusitis
     Dosage: 5 MG, QD
     Route: 065
     Dates: start: 20211119, end: 20211124
  10. PREDONINE [Concomitant]
     Active Substance: PREDNISOLONE
     Dosage: 2.5 MG, QD
     Route: 065
     Dates: start: 20211125, end: 20211130
  11. PREDONINE [Concomitant]
     Active Substance: PREDNISOLONE
     Dosage: 2.5 MG, QOD
     Route: 065
     Dates: start: 20211201, end: 20211223
  12. PREDONINE [Concomitant]
     Active Substance: PREDNISOLONE
     Dosage: 5 MG
     Route: 065
     Dates: start: 20220106, end: 20220112
  13. PREDONINE [Concomitant]
     Active Substance: PREDNISOLONE
     Dosage: 2.5 MG
     Route: 065
     Dates: start: 20220113, end: 20220119
  14. PREDONINE [Concomitant]
     Active Substance: PREDNISOLONE
     Dosage: 1 MG
     Route: 065
     Dates: start: 20220120, end: 20220202
  15. PREDONINE [Concomitant]
     Active Substance: PREDNISOLONE
     Dosage: 1 MG, QOD
     Route: 065
     Dates: start: 20220203

REACTIONS (4)
  - Hypoalbuminaemia [Recovered/Resolved]
  - Generalised oedema [Recovered/Resolved]
  - Nausea [Recovered/Resolved]
  - Abdominal pain upper [Recovered/Resolved]

NARRATIVE: CASE EVENT DATE: 20211224
